FAERS Safety Report 12080751 (Version 3)
Quarter: 2016Q1

REPORT INFORMATION
  Report Type: Report from Study
  Country: IT (occurrence: IT)
  Receive Date: 20160216
  Receipt Date: 20160310
  Transmission Date: 20160526
  Serious: Yes (Other)
  Sender: FDA-Public Use
  Company Number: IT-TEVA-635209ISR

PATIENT

DRUGS (2)
  1. 5-FLUOROURACIL [Concomitant]
     Active Substance: FLUOROURACIL
     Indication: OESOPHAGEAL CARCINOMA
     Dosage: 1000 MG/M2; CONTINUOUS INFUSION OF 96 HOURS
     Route: 041
  2. CISPLATIN. [Suspect]
     Active Substance: CISPLATIN
     Indication: OESOPHAGEAL CARCINOMA
     Dosage: 100 MG/M2; 3 CYCLES ON DAY 1
     Route: 065

REACTIONS (2)
  - Toxicity to various agents [Unknown]
  - Renal failure [Unknown]
